FAERS Safety Report 6626626-2 (Version None)
Quarter: 2010Q1

REPORT INFORMATION
  Report Type: 
  Country: None (occurrence: None)
  Receive Date: 20100309
  Receipt Date: 20100309
  Transmission Date: 20100710
  Serious: Yes (Other)
  Sender: FDA-Public Use
  Company Number: None

PATIENT
  Age: 4 Year
  Sex: Female
  Weight: 13.6079 kg

DRUGS (1)
  1. TRAMADOL HCL [Suspect]
     Indication: TOOTHACHE
     Dosage: 1 DOSE OF 50MG  ONCE PO
     Route: 048
     Dates: start: 20100304, end: 20100305

REACTIONS (4)
  - HALLUCINATION, AUDITORY [None]
  - HALLUCINATION, VISUAL [None]
  - PRURITUS GENERALISED [None]
  - SLEEP DISORDER [None]
